FAERS Safety Report 14769063 (Version 1)
Quarter: 2018Q2

REPORT INFORMATION
  Report Type: Spontaneous
  Country: US (occurrence: US)
  Receive Date: 20180411
  Receipt Date: 20180411
  Transmission Date: 20180711
  Serious: Yes (Other)
  Sender: FDA-Public Use
  Company Number: None

PATIENT
  Age: 73 Year
  Weight: 66.6 kg

DRUGS (1)
  1. MELOXICAM. [Suspect]
     Active Substance: MELOXICAM
     Indication: ARTHRITIS
     Dosage: ?          QUANTITY:90 TABLET(S);?
     Route: 048
     Dates: start: 20180125, end: 20180409

REACTIONS (5)
  - Fall [None]
  - Dyspnoea [None]
  - Laceration [None]
  - Ligament rupture [None]
  - Balance disorder [None]

NARRATIVE: CASE EVENT DATE: 20180215
